FAERS Safety Report 4479342-X (Version None)
Quarter: 2004Q4

REPORT INFORMATION
  Report Type: 
  Country: None (occurrence: None)
  Receive Date: 20041019
  Receipt Date: 20041019
  Transmission Date: 20050328
  Serious: Yes (Life-Threatening)
  Sender: FDA-Public Use
  Company Number: None

PATIENT
  Age: 49 Year
  Sex: Female
  Weight: 108.8633 kg

DRUGS (3)
  1. PAXIL [Suspect]
     Indication: DEPRESSION
     Dosage: 10 MG PO 1 QD
     Route: 048
  2. SONATA [Concomitant]
  3. ALBUTEROL [Concomitant]

REACTIONS (6)
  - DIZZINESS [None]
  - MEDICATION ERROR [None]
  - MOOD ALTERED [None]
  - NAUSEA [None]
  - PAIN [None]
  - SUICIDAL IDEATION [None]
